FAERS Safety Report 19471733 (Version 1)
Quarter: 2021Q2

REPORT INFORMATION
  Report Type: Spontaneous
  Country: US (occurrence: US)
  Receive Date: 20210629
  Receipt Date: 20210629
  Transmission Date: 20210717
  Serious: Yes (Other)
  Sender: FDA-Public Use
  Company Number: US-FRESENIUS KABI-FK202106570

PATIENT
  Age: 58 Year
  Sex: Female

DRUGS (3)
  1. REMDESIVIR. [Concomitant]
     Active Substance: REMDESIVIR
     Indication: COVID-19 PNEUMONIA
     Route: 065
  2. DEXAMETHASONE INJECTION (MANUFACTURER UNKNOWN) [Suspect]
     Active Substance: DEXAMETHASONE
     Indication: COVID-19 PNEUMONIA
     Route: 065
  3. HYPERIMMUNE PLASMA COVID?19 [Concomitant]
     Indication: COVID-19 PNEUMONIA
     Route: 065

REACTIONS (5)
  - Bronchopulmonary aspergillosis [Unknown]
  - Bronchial haemorrhage [Unknown]
  - Off label use [Unknown]
  - Dieulafoy^s vascular malformation [Unknown]
  - Pneumonia escherichia [Unknown]
